FAERS Safety Report 9010662 (Version 1)
Quarter: 2013Q1

REPORT INFORMATION
  Report Type: Spontaneous
  Country: US (occurrence: US)
  Receive Date: 20130109
  Receipt Date: 20130109
  Transmission Date: 20140127
  Serious: No
  Sender: FDA-Public Use
  Company Number: US-JNJFOC-20130101789

PATIENT
  Sex: Male

DRUGS (1)
  1. FENTANYL TRANSDEMAL SYSTEM [Suspect]
     Indication: PRODUCT USED FOR UNKNOWN INDICATION
     Route: 062
     Dates: start: 2012

REACTIONS (1)
  - Wrong technique in drug usage process [Unknown]
